FAERS Safety Report 7264073-3 (Version None)
Quarter: 2011Q1

REPORT INFORMATION
  Report Type: 
  Country: None (occurrence: None)
  Receive Date: 20110130
  Receipt Date: 20101228
  Transmission Date: 20110831
  Serious: No
  Sender: FDA-Public Use
  Company Number: US-ABBOTT-11P-163-0694642-00

PATIENT
  Sex: Male
  Weight: 90.8 kg

DRUGS (2)
  1. METHOTREXATE [Concomitant]
     Indication: PRODUCT USED FOR UNKNOWN INDICATION
  2. HUMIRA [Suspect]
     Indication: RHEUMATOID ARTHRITIS
     Dates: start: 20070101

REACTIONS (4)
  - MUSCULOSKELETAL DISORDER [None]
  - MUSCLE SPASMS [None]
  - ARTHRALGIA [None]
  - MUSCLE TIGHTNESS [None]
